FAERS Safety Report 8870130 (Version 1)
Quarter: 2012Q4

REPORT INFORMATION
  Report Type: 
  Country: CL (occurrence: CL)
  Receive Date: 20121028
  Receipt Date: 20121028
  Transmission Date: 20130627
  Serious: Yes (Life-Threatening, Hospitalization)
  Sender: FDA-Public Use
  Company Number: CL-MYLANLABS-2012S1021615

PATIENT
  Age: 68 Year
  Sex: Female

DRUGS (8)
  1. SPIRONOLACTONE [Suspect]
     Indication: PRODUCT USED FOR UNKNOWN INDICATION
  2. BLINDED STUDY MEDICATION [Suspect]
     Indication: TYPE 2 DIABETES MELLITUS
     Dates: start: 20101228
  3. METFORMIN [Suspect]
     Indication: TYPE 2 DIABETES MELLITUS
  4. GLIBENCLAMIDE [Suspect]
     Indication: TYPE 2 DIABETES MELLITUS
  5. ENALAPRIL [Suspect]
     Indication: PRODUCT USED FOR UNKNOWN INDICATION
  6. ASPIRIN [Concomitant]
     Indication: PRODUCT USED FOR UNKNOWN INDICATION
  7. VERAPAMIL [Concomitant]
     Indication: PRODUCT USED FOR UNKNOWN INDICATION
  8. DILTIAZEM [Concomitant]
     Indication: PRODUCT USED FOR UNKNOWN INDICATION
     Dates: start: 20110629

REACTIONS (5)
  - Hyperkalaemia [Recovered/Resolved]
  - Syncope [Recovered/Resolved]
  - Renal failure acute [Recovering/Resolving]
  - Sinus bradycardia [Unknown]
  - Craniocerebral injury [Unknown]
